FAERS Safety Report 11629456 (Version 1)
Quarter: 2015Q4

REPORT INFORMATION
  Report Type: Spontaneous
  Country: JP (occurrence: JP)
  Receive Date: 20151014
  Receipt Date: 20151014
  Transmission Date: 20160304
  Serious: Yes (Hospitalization)
  Sender: FDA-Public Use
  Company Number: JP-ASTRAZENECA-2015SE99571

PATIENT
  Age: 35 Year
  Sex: Male

DRUGS (3)
  1. SULTANOL [Concomitant]
     Active Substance: ALBUTEROL SULFATE
     Dosage: DOSE UNKNOWN
     Route: 055
  2. SYMBICORT [Suspect]
     Active Substance: BUDESONIDE\FORMOTEROL FUMARATE DIHYDRATE
     Indication: ASTHMA
     Dosage: 1-2 INHALATIONS TWICE DAILY
     Route: 055
  3. EYE DROPS [Concomitant]
     Active Substance: TETRAHYDROZOLINE HYDROCHLORIDE

REACTIONS (1)
  - Psychiatric symptom [Unknown]
